FAERS Safety Report 11467053 (Version 2)
Quarter: 2015Q3

REPORT INFORMATION
  Report Type: Spontaneous
  Country: IN (occurrence: IN)
  Receive Date: 20150908
  Receipt Date: 20150919
  Transmission Date: 20151125
  Serious: Yes (Hospitalization)
  Sender: FDA-Public Use
  Company Number: IN-AUROBINDO-AUR-APL-2015-07895

PATIENT
  Age: 26 Year
  Sex: Male

DRUGS (2)
  1. DIVALPROEX 500MG [Suspect]
     Active Substance: DIVALPROEX SODIUM
     Indication: PARTIAL SEIZURES
     Dosage: 500 MG, TWO TIMES A DAY
     Route: 065
  2. MEROPENEM. [Interacting]
     Active Substance: MEROPENEM
     Indication: PRODUCT USED FOR UNKNOWN INDICATION
     Dosage: 500 MG, TWO TIMES A DAY
     Route: 042

REACTIONS (6)
  - No therapeutic response [Recovering/Resolving]
  - Drug level below therapeutic [Recovering/Resolving]
  - Seizure [Recovering/Resolving]
  - Post procedural pneumonia [Recovering/Resolving]
  - Drug interaction [Recovering/Resolving]
  - Pyrexia [Recovering/Resolving]
